FAERS Safety Report 5787660-8 (Version None)
Quarter: 2008Q2

REPORT INFORMATION
  Report Type: 
  Country: None (occurrence: None)
  Receive Date: 20080623
  Receipt Date: 20080623
  Transmission Date: 20081010
  Serious: No
  Sender: FDA-Public Use
  Company Number: None

PATIENT
  Age: 79 Year
  Sex: Female
  Weight: 61.6892 kg

DRUGS (1)
  1. ERGOCALCIFEROL [Suspect]
     Indication: VITAMIN D DECREASED
     Dosage: ONE ONCE A WEEK ONE TIME ONLY

REACTIONS (4)
  - DRUG TOXICITY [None]
  - DYSSTASIA [None]
  - GAIT DISTURBANCE [None]
  - MUSCULAR WEAKNESS [None]
